FAERS Safety Report 10177479 (Version 2)
Quarter: 2014Q2

REPORT INFORMATION
  Report Type: Spontaneous
  Country: DE (occurrence: DE)
  Receive Date: 20140516
  Receipt Date: 20140613
  Transmission Date: 20141212
  Serious: Yes (Hospitalization, Other)
  Sender: FDA-Public Use
  Company Number: GXKR2014DE001905

PATIENT
  Age: 14 Year
  Sex: Male
  Weight: 54.5 kg

DRUGS (1)
  1. OMNITROPE [Suspect]
     Indication: GROWTH HORMONE DEFICIENCY
     Dosage: 1.2 MG, QD
     Route: 058
     Dates: start: 201309

REACTIONS (4)
  - Myositis [Recovering/Resolving]
  - Blood creatine phosphokinase increased [Recovering/Resolving]
  - Syncope [Unknown]
  - Transaminases increased [Unknown]
